FAERS Safety Report 8376776-8 (Version None)
Quarter: 2012Q2

REPORT INFORMATION
  Report Type: 
  Country: None (occurrence: None)
  Receive Date: 20120522
  Receipt Date: 20120315
  Transmission Date: 20120825
  Serious: No
  Sender: FDA-Public Use
  Company Number: US-BRISTOL-MYERS SQUIBB COMPANY-16422768

PATIENT
  Age: 79 Year
  Sex: Female

DRUGS (6)
  1. ONGLYZA [Suspect]
     Dosage: START DATE:13FEB
     Route: 048
     Dates: start: 20120213
  2. AVALIDE [Concomitant]
  3. XANAX [Concomitant]
  4. EYE DROPS [Concomitant]
  5. HYDRALAZINE HCL [Concomitant]
  6. INSULIN [Concomitant]

REACTIONS (6)
  - ARTHRITIS [None]
  - HEADACHE [None]
  - VISION BLURRED [None]
  - NAUSEA [None]
  - HERPES ZOSTER [None]
  - MALAISE [None]
